FAERS Safety Report 6679673-9 (Version None)
Quarter: 2010Q2

REPORT INFORMATION
  Report Type: 
  Country: None (occurrence: None)
  Receive Date: 20100413
  Receipt Date: 20100402
  Transmission Date: 20101027
  Serious: Yes (Hospitalization)
  Sender: FDA-Public Use
  Company Number: B0646459A

PATIENT
  Sex: Female
  Weight: 64.9 kg

DRUGS (4)
  1. ELTROMBOPAG [Suspect]
     Indication: DRUG USE FOR UNKNOWN INDICATION
     Route: 048
     Dates: start: 20100302
  2. PREDNISOLONE [Concomitant]
     Indication: IDIOPATHIC THROMBOCYTOPENIC PURPURA
     Dosage: 15MG PER DAY
     Dates: start: 20090701
  3. DIOVAN [Concomitant]
     Indication: HYPERTENSION
  4. BETA BLOCKER [Concomitant]
     Indication: ANXIETY
     Route: 065

REACTIONS (4)
  - NAUSEA [None]
  - OLIGURIA [None]
  - RENAL FAILURE ACUTE [None]
  - VOMITING [None]
